FAERS Safety Report 5981169-4 (Version None)
Quarter: 2008Q4

REPORT INFORMATION
  Report Type: 
  Country: None (occurrence: None)
  Receive Date: 20081205
  Receipt Date: 20081201
  Transmission Date: 20090506
  Serious: Yes (Hospitalization)
  Sender: FDA-Public Use
  Company Number: A0759358A

PATIENT
  Age: 25 Year
  Sex: Female

DRUGS (3)
  1. LAMOTRIGINE [Suspect]
     Indication: BIPOLAR DISORDER
     Dosage: 500MG PER DAY
  2. LITHIUM [Concomitant]
     Dosage: 300MG VARIABLE DOSE
  3. VITAMINS [Concomitant]

REACTIONS (3)
  - DRUG EXPOSURE DURING PREGNANCY [None]
  - LIVE BIRTH [None]
  - PREGNANCY INDUCED HYPERTENSION [None]
